FAERS Safety Report 20156502 (Version 2)
Quarter: 2021Q4

REPORT INFORMATION
  Report Type: Spontaneous
  Country: US (occurrence: US)
  Receive Date: 20211207
  Receipt Date: 20211210
  Transmission Date: 20220303
  Serious: Yes (Other)
  Sender: FDA-Public Use
  Company Number: US-TAKEDA-2021TUS077015

PATIENT
  Sex: Female

DRUGS (2)
  1. VONVENDI [Suspect]
     Active Substance: VON WILLEBRAND FACTOR (RECOMBINANT)
     Indication: Von Willebrand^s disease
     Route: 042
  2. IRON [Concomitant]
     Active Substance: IRON
     Route: 065

REACTIONS (2)
  - Heavy menstrual bleeding [Unknown]
  - Blood iron decreased [Unknown]
